FAERS Safety Report 8135564-8 (Version None)
Quarter: 2012Q1

REPORT INFORMATION
  Report Type: 
  Country: None (occurrence: None)
  Receive Date: 20120214
  Receipt Date: 20110902
  Transmission Date: 20120608
  Serious: Yes (Hospitalization, Other)
  Sender: FDA-Public Use
  Company Number: PHEH2011US03304

PATIENT
  Sex: Male
  Weight: 2.268 kg

DRUGS (3)
  1. TRILEPTAL [Suspect]
     Dosage: MATERNAL DOSE: 900 MG
     Route: 064
  2. TRILEPTAL [Suspect]
     Dosage: MATERNAL DOSE: 1050 MG
     Route: 064
  3. TRILEPTAL [Suspect]
     Dosage: MATERNAL DOSE: 2700 MG
     Route: 064

REACTIONS (5)
  - LOW BIRTH WEIGHT BABY [None]
  - HYPOSPADIAS [None]
  - PREMATURE BABY [None]
  - FOETAL EXPOSURE DURING PREGNANCY [None]
  - CHORDEE [None]
